FAERS Safety Report 6958512-2 (Version None)
Quarter: 2010Q3

REPORT INFORMATION
  Report Type: 
  Country: None (occurrence: None)
  Receive Date: 20100831
  Receipt Date: 20100827
  Transmission Date: 20110219
  Serious: Yes (Death)
  Sender: FDA-Public Use
  Company Number: CO-ROCHE-723724

PATIENT
  Sex: Female

DRUGS (3)
  1. AVASTIN [Suspect]
     Indication: COLORECTAL CANCER
     Route: 042
     Dates: start: 20070515, end: 20100225
  2. XELODA [Suspect]
     Indication: COLORECTAL CANCER
     Route: 048
     Dates: start: 20100503, end: 20100724
  3. TRAMADOL HCL [Concomitant]
     Indication: PAIN
     Dosage: FREQUENCY:PRN
     Route: 048

REACTIONS (1)
  - CARDIOPULMONARY FAILURE [None]
